FAERS Safety Report 5133852-0 (Version None)
Quarter: 2006Q4

REPORT INFORMATION
  Report Type: 
  Country: None (occurrence: None)
  Receive Date: 20061024
  Receipt Date: 20061018
  Transmission Date: 20070319
  Serious: Yes (Hospitalization, Other)
  Sender: FDA-Public Use
  Company Number: US-ELI_LILLY_AND_COMPANY-US200610003329

PATIENT
  Age: 93 Year
  Sex: Male

DRUGS (4)
  1. CYMBALTA [Suspect]
     Dosage: 60 MG, UNK
     Dates: start: 20050101
  2. CYMBALTA [Suspect]
     Dosage: 20 MG, UNK
  3. AMLODIPINE [Concomitant]
  4. ATORVASTATIN CALCIUM [Concomitant]

REACTIONS (4)
  - DYSKINESIA [None]
  - MYOCLONUS [None]
  - SEPSIS [None]
  - URINARY TRACT INFECTION [None]
